FAERS Safety Report 8379686 (Version 2)
Quarter: 2012Q4

REPORT INFORMATION
  Report Type: Report from Study
  Country: US (occurrence: US)
  Receive Date: 20120129
  Receipt Date: 20121214
  Transmission Date: 20130627
  Serious: Yes (Hospitalization, Other)
  Sender: FDA-Public Use
  Company Number: US-ABBOTT-11P-163-0878696-00

PATIENT
  Age: 62 Year
  Sex: Female

DRUGS (15)
  1. HUMIRA [Suspect]
     Dates: start: 201107, end: 20111201
  2. HUMIRA [Suspect]
  3. NAPROSYN [Suspect]
     Indication: RHEUMATOID ARTHRITIS
  4. ENBREL [Suspect]
     Indication: PRODUCT USED FOR UNKNOWN INDICATION
     Route: 050
     Dates: start: 2012
  5. PROVIGIL [Suspect]
     Indication: NARCOLEPSY
  6. PROVIGIL [Suspect]
  7. STEROID INJECTION NOS [Suspect]
     Indication: PAIN
     Route: 050
     Dates: start: 201210
  8. OMEPRAZOLE [Concomitant]
     Indication: IMPAIRED GASTRIC EMPTYING
  9. HYDROCHLOROTHIAZIDE [Concomitant]
     Indication: HYPERTENSION
  10. LISINOPRIL [Concomitant]
     Indication: HYPERTENSION
  11. AMBIEN [Concomitant]
     Indication: INSOMNIA
  12. SIMVASTATIN [Concomitant]
     Indication: BLOOD CHOLESTEROL INCREASED
  13. XENAZINE [Concomitant]
     Indication: TARDIVE DYSKINESIA
  14. XENAZINE [Concomitant]
     Dates: start: 2012
  15. HYDROCODONE [Concomitant]
     Indication: PAIN

REACTIONS (15)
  - Rotator cuff syndrome [Unknown]
  - Tremor [Recovering/Resolving]
  - Muscle spasms [Recovered/Resolved]
  - Arthralgia [Not Recovered/Not Resolved]
  - Drug dose omission [Unknown]
  - Muscle spasms [Recovered/Resolved]
  - Contusion [Recovered/Resolved]
  - Nasopharyngitis [Not Recovered/Not Resolved]
  - Muscular weakness [Recovered/Resolved]
  - Pain [Unknown]
  - Dyskinesia [Unknown]
  - Rotator cuff syndrome [Not Recovered/Not Resolved]
  - Narcolepsy [Recovering/Resolving]
  - Musculoskeletal pain [Unknown]
  - Arthritis [Unknown]
